FAERS Safety Report 16060827 (Version 1)
Quarter: 2019Q1

REPORT INFORMATION
  Report Type: Spontaneous
  Country: DK (occurrence: DK)
  Receive Date: 20190312
  Receipt Date: 20190312
  Transmission Date: 20190418
  Serious: Yes (Other)
  Sender: FDA-Public Use
  Company Number: DK-SA-2019SA061266

PATIENT
  Age: 34 Year
  Sex: Female

DRUGS (6)
  1. TAXOTERE [Suspect]
     Active Substance: DOCETAXEL
     Dosage: UNK, QCY
     Route: 065
     Dates: start: 20121228, end: 20121228
  2. CYCLOPHOSPHAMIDE. [Suspect]
     Active Substance: CYCLOPHOSPHAMIDE
     Dosage: 1000 MG, UNK
     Route: 065
     Dates: start: 20120928, end: 20120928
  3. TAXOTERE [Suspect]
     Active Substance: DOCETAXEL
     Indication: BREAST CANCER
     Dosage: UNK, QCY
     Route: 065
     Dates: start: 20121022, end: 20121022
  4. EPIRUBICIN [Suspect]
     Active Substance: EPIRUBICIN
     Dosage: 151 MG, QCY
     Route: 065
     Dates: start: 20120928, end: 20120928
  5. EPIRUBICIN [Suspect]
     Active Substance: EPIRUBICIN
     Indication: BREAST CANCER
     Dosage: 151 MG, QCY
     Route: 065
     Dates: start: 20120727, end: 20120727
  6. CYCLOPHOSPHAMIDE. [Suspect]
     Active Substance: CYCLOPHOSPHAMIDE
     Indication: BREAST CANCER
     Dosage: 1000 MG, UNK
     Route: 065
     Dates: start: 20120727, end: 20120727

REACTIONS (6)
  - Neutropenia [Unknown]
  - Nausea [Unknown]
  - Pyrexia [Unknown]
  - Visual impairment [Unknown]
  - Cognitive disorder [Unknown]
  - Fatigue [Unknown]
